FAERS Safety Report 7118922-X (Version None)
Quarter: 2010Q4

REPORT INFORMATION
  Report Type: 
  Country: None (occurrence: None)
  Receive Date: 20101123
  Receipt Date: 20101110
  Transmission Date: 20110411
  Serious: Yes (Hospitalization, Other)
  Sender: FDA-Public Use
  Company Number: CA-ROCHE-736877

PATIENT
  Sex: Female

DRUGS (3)
  1. PEGASYS [Suspect]
     Dosage: COMPLETED 48 WEEKS
     Route: 058
     Dates: end: 20100901
  2. COPEGUS [Suspect]
     Dosage: COMPLETED 48 WEEKS
     Route: 048
     Dates: end: 20100901
  3. COUMADIN [Suspect]
     Indication: DEEP VEIN THROMBOSIS
     Route: 065
     Dates: start: 20101001, end: 20101001

REACTIONS (5)
  - ASTHENIA [None]
  - BLOOD CREATININE INCREASED [None]
  - DEEP VEIN THROMBOSIS [None]
  - GAIT DISTURBANCE [None]
  - HEADACHE [None]
